FAERS Safety Report 5042148-7 (Version None)
Quarter: 2006Q2

REPORT INFORMATION
  Report Type: 
  Country: None (occurrence: None)
  Receive Date: 20060627
  Receipt Date: 20060620
  Transmission Date: 20061013
  Serious: Yes (Death)
  Sender: FDA-Public Use
  Company Number: US200606001716

PATIENT
  Age: 38 Year
  Sex: Female

DRUGS (1)
  1. PROZAC [Suspect]
     Dosage: 20 MG, EACH MORNING, ORAL
     Route: 048

REACTIONS (5)
  - INJURY [None]
  - OVERDOSE [None]
  - PHYSICAL ASSAULT [None]
  - THERAPEUTIC AGENT TOXICITY [None]
  - WOUND [None]
